FAERS Safety Report 6503072-3 (Version None)
Quarter: 2009Q4

REPORT INFORMATION
  Report Type: 
  Country: None (occurrence: None)
  Receive Date: 20091217
  Receipt Date: 20091209
  Transmission Date: 20100525
  Serious: Yes (Other)
  Sender: FDA-Public Use
  Company Number: FR-SANOFI-AVENTIS-2009SA007435

PATIENT
  Age: 84 Year
  Sex: Female
  Weight: 68 kg

DRUGS (6)
  1. LASIX [Suspect]
     Indication: MEDICATION ERROR
     Route: 048
     Dates: start: 20091120, end: 20091120
  2. LASIX [Suspect]
     Indication: WRONG DRUG ADMINISTERED
     Route: 048
     Dates: start: 20091120, end: 20091120
  3. LODOZ [Concomitant]
     Indication: DRUG USE FOR UNKNOWN INDICATION
  4. VASTEN [Concomitant]
     Indication: DRUG USE FOR UNKNOWN INDICATION
  5. VASTAREL F [Concomitant]
     Indication: DRUG USE FOR UNKNOWN INDICATION
  6. DIAMICRON [Concomitant]
     Indication: DRUG USE FOR UNKNOWN INDICATION

REACTIONS (8)
  - ASTHENIA [None]
  - HYPOTENSION [None]
  - MEDICATION ERROR [None]
  - PAIN IN EXTREMITY [None]
  - POLYURIA [None]
  - VERTIGO [None]
  - VOMITING [None]
  - WRONG DRUG ADMINISTERED [None]
